FAERS Safety Report 8570312-9 (Version None)
Quarter: 2012Q3

REPORT INFORMATION
  Report Type: 
  Country: None (occurrence: None)
  Receive Date: 20120803
  Receipt Date: 20120723
  Transmission Date: 20120928
  Serious: Yes (Hospitalization)
  Sender: FDA-Public Use
  Company Number: US-009507513-1207USA011287

PATIENT

DRUGS (2)
  1. ZOCOR [Suspect]
     Dosage: 40 MG, HS
     Route: 048
  2. DIAZEPAM [Suspect]
     Dosage: 2 MG, UNK
     Route: 048

REACTIONS (3)
  - SOMNOLENCE [None]
  - HEPATIC ENZYME INCREASED [None]
  - HEPATOCELLULAR INJURY [None]
